FAERS Safety Report 6345157-0 (Version None)
Quarter: 2009Q3

REPORT INFORMATION
  Report Type: 
  Country: None (occurrence: None)
  Receive Date: 20090909
  Receipt Date: 20070921
  Transmission Date: 20100115
  Serious: Yes (Hospitalization, Other)
  Sender: FDA-Public Use
  Company Number: US-ASTRAZENECA-2007UW16466

PATIENT
  Age: 12447 Day
  Sex: Female
  Weight: 74.4 kg

DRUGS (10)
  1. SEROQUEL [Suspect]
     Dosage: 100-200 MG
     Route: 048
  2. SEROQUEL [Suspect]
  3. RISPERDAL [Concomitant]
  4. RISPERDAL [Concomitant]
     Route: 048
     Dates: start: 20050620
  5. ZYPREXA [Concomitant]
  6. GEODON [Concomitant]
  7. NOVOLOG MIX 70/30 [Concomitant]
     Dosage: 60 UNITS IN THE MORNING AND 30 UNITS IN THE EVENING
     Route: 058
     Dates: start: 20050620
  8. METFORMIN HCL [Concomitant]
     Route: 048
     Dates: start: 20021217
  9. LITHIUM [Concomitant]
     Route: 048
     Dates: start: 20050620
  10. GLIPIZIDE [Concomitant]
     Route: 048
     Dates: start: 20021126

REACTIONS (4)
  - ALCOHOLIC PANCREATITIS [None]
  - PANCREATITIS [None]
  - PANCREATITIS ACUTE [None]
  - PANCREATITIS CHRONIC [None]
